FAERS Safety Report 21940058 (Version 1)
Quarter: 2023Q1

REPORT INFORMATION
  Report Type: Report from Study
  Country: BR (occurrence: BR)
  Receive Date: 20230201
  Receipt Date: 20230201
  Transmission Date: 20230417
  Serious: Yes (Disabling, Other)
  Sender: FDA-Public Use
  Company Number: BR-ABBVIE-4156809

PATIENT
  Sex: Female
  Weight: 67 kg

DRUGS (4)
  1. RINVOQ [Suspect]
     Active Substance: UPADACITINIB
     Indication: Rheumatoid arthritis
     Dosage: 1 TABLET
     Route: 048
     Dates: start: 20210610
  2. RINVOQ [Suspect]
     Active Substance: UPADACITINIB
     Indication: Rheumatoid arthritis
     Dosage: 1 TABLET
     Route: 048
     Dates: start: 20210610
  3. Maxsulid (nimesulid) [Concomitant]
     Indication: Arthritis
  4. TRAMADOL HYDROCHLORIDE [Concomitant]
     Active Substance: TRAMADOL HYDROCHLORIDE
     Indication: Arthritis

REACTIONS (17)
  - Suicidal ideation [Unknown]
  - Spinal pain [Unknown]
  - Peripheral swelling [Not Recovered/Not Resolved]
  - Pain in extremity [Not Recovered/Not Resolved]
  - Arthritis [Unknown]
  - Blood insulin increased [Unknown]
  - Muscle swelling [Unknown]
  - Pain [Unknown]
  - Back pain [Unknown]
  - Joint swelling [Unknown]
  - Joint range of motion decreased [Unknown]
  - Acute myocardial infarction [Unknown]
  - Tension [Unknown]
  - Bedridden [Unknown]
  - Wheelchair user [Unknown]
  - Arthralgia [Not Recovered/Not Resolved]
  - Wheelchair user [Unknown]
